FAERS Safety Report 4945420-1 (Version None)
Quarter: 2006Q1

REPORT INFORMATION
  Report Type: 
  Country: None (occurrence: None)
  Receive Date: 20060316
  Receipt Date: 20051118
  Transmission Date: 20060701
  Serious: Yes (Congenital Anomaly)
  Sender: FDA-Public Use
  Company Number: US-GLAXOSMITHKLINE-A0589768A

PATIENT
  Weight: 4.4 kg

DRUGS (3)
  1. LAMICTAL [Suspect]
     Indication: EPILEPSY
  2. VITAMIN AND MINERAL PRENATAL SUPPLEMENT W/ FOLIC ACID CAP [Concomitant]
  3. FOLIC ACID [Concomitant]

REACTIONS (3)
  - CLEFT LIP [None]
  - DRUG EXPOSURE DURING PREGNANCY [None]
  - HYDROCELE [None]
